FAERS Safety Report 12930367 (Version 1)
Quarter: 2016Q4

REPORT INFORMATION
  Report Type: Spontaneous
  Country: FR (occurrence: FR)
  Receive Date: 20161110
  Receipt Date: 20161110
  Transmission Date: 20170207
  Serious: Yes (Other)
  Sender: FDA-Public Use
  Company Number: FR-PFIZER INC-2016511444

PATIENT
  Age: 71 Year
  Sex: Female

DRUGS (16)
  1. VANCOMYCINE [Suspect]
     Active Substance: VANCOMYCIN
     Indication: SEPSIS
     Dosage: 2.5 G, 1X/DAY
     Route: 042
     Dates: start: 20140407, end: 20140419
  2. DEPAMIDE [Concomitant]
     Active Substance: VALPROMIDE
  3. LASILIX /00032601/ [Concomitant]
     Active Substance: FUROSEMIDE
     Dosage: 40 MG, 1X/DAY
     Route: 048
  4. SEROPLEX [Concomitant]
     Active Substance: ESCITALOPRAM OXALATE
  5. ZOLPIDEM [Concomitant]
     Active Substance: ZOLPIDEM\ZOLPIDEM TARTRATE
  6. RIMACTAN /00146901/ [Suspect]
     Active Substance: RIFAMPIN
     Indication: SEPSIS
     Dosage: 1200 MG, 1X/DAY
     Route: 048
     Dates: start: 20140407, end: 20140419
  7. KARDEGIC [Concomitant]
     Active Substance: ASPIRIN LYSINE
  8. ALDACTONE [Suspect]
     Active Substance: SPIRONOLACTONE
     Dosage: 50 MG, 1X/DAY
     Route: 048
     Dates: start: 201404
  9. TAHOR [Concomitant]
     Active Substance: ATORVASTATIN CALCIUM
  10. FOSAMAX [Concomitant]
     Active Substance: ALENDRONATE SODIUM
  11. RAMIPRIL. [Concomitant]
     Active Substance: RAMIPRIL
     Dosage: 10 MG, 1X/DAY
  12. ZANIDIP [Suspect]
     Active Substance: LERCANIDIPINE HYDROCHLORIDE
     Dosage: 10 MG, 1X/DAY
     Route: 048
     Dates: end: 201404
  13. CORDARONE [Concomitant]
     Active Substance: AMIODARONE HYDROCHLORIDE
  14. LOVENOX [Concomitant]
     Active Substance: ENOXAPARIN SODIUM
  15. PLAVIX [Concomitant]
     Active Substance: CLOPIDOGREL BISULFATE
  16. LEVOTHYROX [Concomitant]
     Active Substance: LEVOTHYROXINE

REACTIONS (1)
  - Renal tubular necrosis [Recovering/Resolving]

NARRATIVE: CASE EVENT DATE: 201404
